FAERS Safety Report 22057381 (Version 1)
Quarter: 2023Q1

REPORT INFORMATION
  Report Type: Report from Study
  Country: BR (occurrence: BR)
  Receive Date: 20230303
  Receipt Date: 20230303
  Transmission Date: 20230418
  Serious: Yes (Disabling)
  Sender: FDA-Public Use
  Company Number: BR-002147023-NVSC2023BR045461

PATIENT
  Sex: Female

DRUGS (2)
  1. TRILEPTAL [Suspect]
     Active Substance: OXCARBAZEPINE
     Indication: Product used for unknown indication
     Dosage: UNK (300, ABOUT 10 YEARS AGO)
     Route: 065
  2. TRILEPTAL [Suspect]
     Active Substance: OXCARBAZEPINE
     Dosage: UNK (600)
     Route: 065

REACTIONS (6)
  - Mental disability [Unknown]
  - Aphasia [Unknown]
  - Condition aggravated [Unknown]
  - Accident [Unknown]
  - Gait disturbance [Unknown]
  - Drug ineffective [Unknown]
